FAERS Safety Report 9476792 (Version 1)
Quarter: 2013Q3

REPORT INFORMATION
  Report Type: Spontaneous
  Country: US (occurrence: US)
  Receive Date: 20130826
  Receipt Date: 20130826
  Transmission Date: 20140515
  Serious: Yes (Other)
  Sender: FDA-Public Use
  Company Number: US-009507513-1308USA008407

PATIENT
  Sex: Female

DRUGS (2)
  1. CLARITIN ORAL SOLUTION [Suspect]
     Indication: MEDICAL OBSERVATION
     Dosage: 10 MG, Q4H
     Route: 048
  2. BENADRYL [Suspect]
     Indication: MEDICAL OBSERVATION
     Route: 048

REACTIONS (2)
  - Hypersensitivity [Unknown]
  - Overdose [Unknown]
